FAERS Safety Report 25575069 (Version 1)
Quarter: 2025Q3

REPORT INFORMATION
  Report Type: Spontaneous
  Country: GB (occurrence: GB)
  Receive Date: 20250718
  Receipt Date: 20250718
  Transmission Date: 20251021
  Serious: Yes (Life-Threatening, Hospitalization, Other)
  Sender: SANDOZ
  Company Number: GB-SANDOZ-SDZ2025GB050471

PATIENT
  Age: 67 Year
  Sex: Female

DRUGS (2)
  1. BUDESONIDE [Suspect]
     Active Substance: BUDESONIDE
     Indication: Colitis microscopic
     Route: 065
  2. ASPIRIN [Concomitant]
     Active Substance: ASPIRIN
     Indication: Colitis microscopic
     Route: 065

REACTIONS (5)
  - Cardiac arrest [Unknown]
  - Hypokalaemia [Unknown]
  - Ventricular tachyarrhythmia [Unknown]
  - Drug ineffective [Unknown]
  - Product use in unapproved indication [Unknown]
